FAERS Safety Report 5611294-9 (Version None)
Quarter: 2008Q1

REPORT INFORMATION
  Report Type: 
  Country: None (occurrence: None)
  Receive Date: 20080201
  Receipt Date: 20080128
  Transmission Date: 20080703
  Serious: Yes (Other)
  Sender: FDA-Public Use
  Company Number: US-ASTRAZENECA-2008UW01907

PATIENT
  Age: 71 Year
  Sex: Female
  Weight: 60.8 kg

DRUGS (5)
  1. ARIMIDEX [Suspect]
     Indication: BREAST CANCER
     Route: 048
  2. SYNTHROID [Concomitant]
  3. FOSAMAX [Concomitant]
  4. CALCIUM GLUCONATE [Concomitant]
  5. MULTI-VITAMIN [Concomitant]

REACTIONS (4)
  - ARTHRALGIA [None]
  - DEAFNESS [None]
  - MYALGIA [None]
  - TRIGGER FINGER [None]
